FAERS Safety Report 22626929 (Version 1)
Quarter: 2023Q2

REPORT INFORMATION
  Report Type: Spontaneous
  Country: IT (occurrence: IT)
  Receive Date: 20230622
  Receipt Date: 20230622
  Transmission Date: 20230722
  Serious: Yes (Hospitalization)
  Sender: FDA-Public Use
  Company Number: None

PATIENT
  Age: 83 Year
  Sex: Female

DRUGS (3)
  1. XARELTO [Suspect]
     Active Substance: RIVAROXABAN
     Indication: Atrial fibrillation
     Route: 048
     Dates: start: 20190601, end: 20230605
  2. AMIODARONE [Concomitant]
     Active Substance: AMIODARONE
  3. MICARDIS [Concomitant]
     Active Substance: TELMISARTAN

REACTIONS (3)
  - Clonus [Recovering/Resolving]
  - Cerebral haemorrhage [Recovering/Resolving]
  - Sopor [Recovering/Resolving]

NARRATIVE: CASE EVENT DATE: 20230605
